FAERS Safety Report 18636830 (Version 2)
Quarter: 2021Q1

REPORT INFORMATION
  Report Type: Report from Study
  Country: US (occurrence: US)
  Receive Date: 20201218
  Receipt Date: 20210322
  Transmission Date: 20210419
  Serious: Yes (Other)
  Sender: FDA-Public Use
  Company Number: US-BRISTOL-MYERS SQUIBB COMPANY-BMS-2020-105617

PATIENT
  Age: 55 Year
  Sex: Male
  Weight: 90.71 kg

DRUGS (3)
  1. NIVOLUMAB [Suspect]
     Active Substance: NIVOLUMAB
     Dosage: MONTHLY
     Route: 042
     Dates: start: 202004, end: 202005
  2. IPILIMUMAB [Suspect]
     Active Substance: IPILIMUMAB
     Indication: RENAL CELL CARCINOMA
     Dosage: EVERY 3 WEEKS
     Route: 042
     Dates: start: 201911, end: 202001
  3. NIVOLUMAB [Suspect]
     Active Substance: NIVOLUMAB
     Indication: RENAL CELL CARCINOMA
     Dosage: EVERY 3 WEEKS
     Route: 042
     Dates: start: 201911, end: 202003

REACTIONS (12)
  - Respiratory tract congestion [Unknown]
  - Insomnia [Unknown]
  - Sneezing [Unknown]
  - Diarrhoea [Unknown]
  - Fatigue [Unknown]
  - Type 1 diabetes mellitus [Unknown]
  - Hypothyroidism [Unknown]
  - Pruritus [Unknown]
  - Rash [Unknown]
  - Drug ineffective [Unknown]
  - Aptyalism [Unknown]
  - Malignant neoplasm progression [Unknown]

NARRATIVE: CASE EVENT DATE: 201912
